FAERS Safety Report 13747624 (Version 1)
Quarter: 2017Q3

REPORT INFORMATION
  Report Type: Spontaneous
  Country: US (occurrence: US)
  Receive Date: 20170712
  Receipt Date: 20170712
  Transmission Date: 20171127
  Serious: Yes (Other)
  Sender: FDA-Public Use
  Company Number: US-TEVA-787281USA

PATIENT
  Sex: Female

DRUGS (1)
  1. RISEDRONIC ACID [Suspect]
     Active Substance: RISEDRONIC ACID
     Indication: PRODUCT USED FOR UNKNOWN INDICATION
     Route: 065

REACTIONS (4)
  - Eye haemorrhage [Unknown]
  - Wrong technique in product usage process [Unknown]
  - Visual impairment [Unknown]
  - Vision blurred [Unknown]
